FAERS Safety Report 8048590-4 (Version None)
Quarter: 2012Q1

REPORT INFORMATION
  Report Type: 
  Country: None (occurrence: None)
  Receive Date: 20120117
  Receipt Date: 20120112
  Transmission Date: 20120608
  Serious: Yes (Other)
  Sender: FDA-Public Use
  Company Number: IT-PFIZER INC-2012009320

PATIENT
  Age: 46 Year
  Sex: Female

DRUGS (1)
  1. IRINOTECAN HCL [Suspect]
     Indication: GASTRIC CANCER
     Dosage: 207 MG, CYCLIC
     Route: 042
     Dates: start: 20110120

REACTIONS (5)
  - CONSTIPATION [None]
  - DYSPEPSIA [None]
  - ABDOMINAL PAIN [None]
  - DYSMENORRHOEA [None]
  - OLIGOMENORRHOEA [None]
